FAERS Safety Report 4752392-1 (Version None)
Quarter: 2005Q3

REPORT INFORMATION
  Report Type: 
  Country: None (occurrence: None)
  Receive Date: 20050823
  Receipt Date: 20050810
  Transmission Date: 20060218
  Serious: Yes (Death)
  Sender: FDA-Public Use
  Company Number: 2005109589

PATIENT
  Age: 54 Year
  Sex: Female

DRUGS (1)
  1. VFEND [Suspect]
     Indication: BRONCHOPULMONARY ASPERGILLOSIS
     Dosage: 400 MG (2 IN 1 D), INTRAVENOUS
     Route: 042
     Dates: start: 20050720

REACTIONS (8)
  - COLOUR BLINDNESS [None]
  - CONDITION AGGRAVATED [None]
  - HALLUCINATION [None]
  - HALLUCINATION, AUDITORY [None]
  - PLEURAL EFFUSION [None]
  - PNEUMONIA [None]
  - RESPIRATORY FAILURE [None]
  - XANTHOPSIA [None]
